APPROVED DRUG PRODUCT: NYSTATIN AND TRIAMCINOLONE ACETONIDE
Active Ingredient: NYSTATIN; TRIAMCINOLONE ACETONIDE
Strength: 100,000 UNITS/GM;0.1%
Dosage Form/Route: CREAM;TOPICAL
Application: A062364 | Product #001 | TE Code: AT
Applicant: SUN PHARMA CANADA INC
Approved: Dec 22, 1987 | RLD: No | RS: Yes | Type: RX